FAERS Safety Report 6132556-5 (Version None)
Quarter: 2009Q1

REPORT INFORMATION
  Report Type: 
  Country: None (occurrence: None)
  Receive Date: 20090324
  Receipt Date: 20090309
  Transmission Date: 20090719
  Serious: Yes (Other)
  Sender: FDA-Public Use
  Company Number: 2009S1004142

PATIENT
  Age: 33 Year
  Sex: Male

DRUGS (4)
  1. CISATRACURIUM BESILATE (CISATRACURIUM BESILATE) [Suspect]
     Indication: SURGERY
  2. PROPOFOL [Suspect]
     Indication: SURGERY
  3. FENTANYL-100 [Suspect]
     Indication: SURGERY
  4. CEFAZOLIN [Suspect]
     Indication: SURGERY

REACTIONS (2)
  - ANAPHYLACTIC REACTION [None]
  - BREATH SOUNDS ABNORMAL [None]
